FAERS Safety Report 18355477 (Version 1)
Quarter: 2020Q4

REPORT INFORMATION
  Report Type: Spontaneous
  Country: US (occurrence: US)
  Receive Date: 20201007
  Receipt Date: 20201007
  Transmission Date: 20210114
  Serious: No
  Sender: FDA-Public Use
  Company Number: US-PFIZER INC-2020383602

PATIENT
  Age: 55 Year
  Sex: Female
  Weight: 77.11 kg

DRUGS (2)
  1. RAMIPRIL. [Suspect]
     Active Substance: RAMIPRIL
     Indication: BLOOD PRESSURE ABNORMAL
  2. RAMIPRIL. [Suspect]
     Active Substance: RAMIPRIL
     Indication: MITRAL VALVE PROLAPSE
     Dosage: 5 MG, 1X/DAY
     Route: 048

REACTIONS (2)
  - Drug hypersensitivity [Not Recovered/Not Resolved]
  - Hypertension [Recovered/Resolved]
